FAERS Safety Report 4687171-7 (Version None)
Quarter: 2005Q2

REPORT INFORMATION
  Report Type: 
  Country: None (occurrence: None)
  Receive Date: 20050607
  Receipt Date: 20050523
  Transmission Date: 20051028
  Serious: Yes (Other)
  Sender: FDA-Public Use
  Company Number: 2005-128477-NL

PATIENT
  Age: 37 Year
  Sex: Female
  Weight: 59.1 kg

DRUGS (3)
  1. NUVARING [Suspect]
     Indication: CONTRACEPTION
     Dosage: NI; VAGINAL
     Route: 067
     Dates: start: 20040501
  2. LACI LE BEAU [Concomitant]
  3. VALERIAN [Concomitant]

REACTIONS (5)
  - DIZZINESS [None]
  - IMPAIRED DRIVING ABILITY [None]
  - SOMNOLENCE [None]
  - VERTIGO [None]
  - VISUAL DISTURBANCE [None]
